FAERS Safety Report 8302383-9 (Version None)
Quarter: 2012Q2

REPORT INFORMATION
  Report Type: 
  Country: None (occurrence: None)
  Receive Date: 20120420
  Receipt Date: 20120410
  Transmission Date: 20120825
  Serious: Yes (Hospitalization)
  Sender: FDA-Public Use
  Company Number: US-JNJFOC-20120205056

PATIENT
  Sex: Female

DRUGS (5)
  1. LORAZEPAM [Concomitant]
     Route: 065
     Dates: start: 20110629
  2. SEROQUEL [Concomitant]
     Dosage: 100 UG IN AFTERNOON AND 1200 UG AT HOUR OF SLEEP
     Route: 065
     Dates: start: 20110629
  3. INVEGA SUSTENNA [Suspect]
     Indication: SCHIZOPHRENIA
     Route: 030
     Dates: start: 20120201, end: 20120201
  4. HALOPERIDOL [Concomitant]
     Route: 065
     Dates: start: 20110706
  5. BENZTROPINE MESYLATE [Concomitant]
     Indication: EXTRAPYRAMIDAL DISORDER
     Route: 065
     Dates: start: 20120111

REACTIONS (5)
  - DIARRHOEA [None]
  - HYPOTENSION [None]
  - RASH [None]
  - CONFUSIONAL STATE [None]
  - VOMITING [None]
